FAERS Safety Report 12889535 (Version 3)
Quarter: 2017Q2

REPORT INFORMATION
  Report Type: Spontaneous
  Country: DE (occurrence: DE)
  Receive Date: 20161027
  Receipt Date: 20170424
  Transmission Date: 20170830
  Serious: Yes (Disabling, Other)
  Sender: FDA-Public Use
  Company Number: DE-SA-2016SA194914

PATIENT
  Age: 75 Year
  Sex: Male
  Weight: 88 kg

DRUGS (5)
  1. DECORTIN-H [Concomitant]
     Active Substance: PREDNISOLONE
     Indication: RHINITIS ALLERGIC
     Route: 048
  2. FEXOFENADINE HYDROCHLORIDE. [Suspect]
     Active Substance: FEXOFENADINE HYDROCHLORIDE
     Indication: RHINITIS ALLERGIC
     Dosage: DOSAGE FORM: 82 (FILM-COATED TABLET)
     Route: 048
     Dates: start: 20160407, end: 20160414
  3. FEXOFENADINE HYDROCHLORIDE. [Suspect]
     Active Substance: FEXOFENADINE HYDROCHLORIDE
     Indication: SEASONAL ALLERGY
     Dosage: DOSAGE FORM: 82 (FILM-COATED TABLET)
     Route: 048
     Dates: start: 20160407, end: 20160414
  4. AERIUS [Concomitant]
     Active Substance: DESLORATADINE
     Indication: SEASONAL ALLERGY
     Dosage: DOSAGE FORM: 82 (FILM-COATED TABLET)
     Route: 065
     Dates: start: 20160422
  5. LISINOPRIL. [Concomitant]
     Active Substance: LISINOPRIL
     Indication: HYPERTENSION
     Route: 048

REACTIONS (2)
  - Anosmia [Not Recovered/Not Resolved]
  - Ageusia [Not Recovered/Not Resolved]

NARRATIVE: CASE EVENT DATE: 20160414
